FAERS Safety Report 9760122 (Version 1)
Quarter: 2013Q4

REPORT INFORMATION
  Report Type: Spontaneous
  Country: JP (occurrence: None)
  Receive Date: 20131212
  Receipt Date: 20131212
  Transmission Date: 20140711
  Serious: Yes (Life-Threatening)
  Sender: FDA-Public Use
  Company Number: 1976383

PATIENT
  Age: 72 Year
  Sex: Male
  Weight: 62 kg

DRUGS (10)
  1. DEXMEDETOMIDINE HYDROCHLORIDE [Suspect]
     Indication: SEDATIVE THERAPY
     Route: 041
     Dates: start: 20131015, end: 20131015
  2. DEXMEDETOMIDINE HYDROCHLORIDE [Suspect]
     Indication: GASTROINTESTINAL ENDOSCOPIC THERAPY
     Route: 041
     Dates: start: 20131015, end: 20131015
  3. MIDAZOLAM [Concomitant]
  4. PETHIDINE HYDROCHLORIDE [Concomitant]
  5. FLUMAZENIL [Concomitant]
  6. ATROPINE SULFATE [Concomitant]
  7. NALOXONE HYDROCHLORIDE [Concomitant]
  8. ADRENALINE [Concomitant]
  9. DOPAMINE HYDROCHLORIDE [Concomitant]
  10. SALINE [Concomitant]

REACTIONS (18)
  - Cardiogenic shock [None]
  - Eye movement disorder [None]
  - Ventricular tachycardia [None]
  - Oxygen saturation decreased [None]
  - Pulse absent [None]
  - Prinzmetal angina [None]
  - Red blood cell count increased [None]
  - Haemoglobin increased [None]
  - Platelet count decreased [None]
  - White blood cell count increased [None]
  - Lymphocyte percentage increased [None]
  - Blood creatinine increased [None]
  - Protein total decreased [None]
  - Myocardial ischaemia [None]
  - Neutrophil percentage increased [None]
  - Lymphocyte percentage decreased [None]
  - Blood bilirubin increased [None]
  - Wrong technique in drug usage process [None]
